FAERS Safety Report 23254285 (Version 2)
Quarter: 2024Q2

REPORT INFORMATION
  Report Type: Report from Study
  Country: US (occurrence: US)
  Receive Date: 20231202
  Receipt Date: 20240416
  Transmission Date: 20240716
  Serious: No
  Sender: FDA-Public Use
  Company Number: US-ACADIA PHARMACEUTICALS INC.-ACA-2023-PIM-005194

PATIENT
  Sex: Female

DRUGS (12)
  1. NUPLAZID [Suspect]
     Active Substance: PIMAVANSERIN TARTRATE
     Indication: Parkinson^s disease
     Dosage: 34 MILLIGRAM, QD
     Route: 048
     Dates: start: 20230830
  2. NUPLAZID [Suspect]
     Active Substance: PIMAVANSERIN TARTRATE
     Dosage: 34 MILLIGRAM, QD
     Route: 048
  3. VITAMIN D3 [Concomitant]
     Active Substance: CHOLECALCIFEROL
  4. CALCIUM CITRATE [Concomitant]
     Active Substance: CALCIUM CITRATE
  5. ATIVAN [Concomitant]
     Active Substance: LORAZEPAM
  6. SEROQUEL [Concomitant]
     Active Substance: QUETIAPINE FUMARATE
  7. CICLOPIROX [Concomitant]
     Active Substance: CICLOPIROX\TOCOPHEROL
  8. INBRIJA [Concomitant]
     Active Substance: LEVODOPA
  9. CARBIDOPA [Concomitant]
     Active Substance: CARBIDOPA
  10. VITAMINS [Concomitant]
     Active Substance: VITAMINS
  11. XYLITOL [Concomitant]
     Active Substance: XYLITOL
  12. SERTRALINE [Concomitant]
     Active Substance: SERTRALINE HYDROCHLORIDE

REACTIONS (2)
  - Drug ineffective [Unknown]
  - Drug ineffective [Unknown]
